FAERS Safety Report 9467048 (Version 1)
Quarter: 2013Q3

REPORT INFORMATION
  Report Type: Spontaneous
  Country: NL (occurrence: NL)
  Receive Date: 20130820
  Receipt Date: 20130820
  Transmission Date: 20140515
  Serious: Yes (Hospitalization, Congenital Anomaly)
  Sender: FDA-Public Use
  Company Number: NL-GLAXOSMITHKLINE-B0915670A

PATIENT
  Age: 0 Day
  Sex: Female
  Weight: 3.1 kg

DRUGS (1)
  1. LAMOTRIGINE [Suspect]
     Indication: BIPOLAR DISORDER
     Dosage: 200MG TWICE PER DAY
     Route: 064
     Dates: start: 1977

REACTIONS (4)
  - Adnexal torsion [Recovering/Resolving]
  - Congenital large intestinal atresia [Recovering/Resolving]
  - Congenital ovarian anomaly [Recovering/Resolving]
  - Foetal exposure during pregnancy [Unknown]
